FAERS Safety Report 7967901-9 (Version None)
Quarter: 2011Q4

REPORT INFORMATION
  Report Type: 
  Country: None (occurrence: None)
  Receive Date: 20111209
  Receipt Date: 20111129
  Transmission Date: 20120403
  Serious: Yes (Other)
  Sender: FDA-Public Use
  Company Number: US-ROCHE-1017365

PATIENT
  Age: 71 Year
  Sex: Female
  Weight: 40.678 kg

DRUGS (10)
  1. AVASTIN [Suspect]
     Indication: HEPATIC CANCER METASTATIC
     Route: 042
  2. NORVASC [Concomitant]
  3. TARCEVA [Suspect]
     Indication: HEPATIC CANCER METASTATIC
     Route: 048
  4. ADVAIR DISKUS 100/50 [Concomitant]
     Dosage: 750-50 MCG.
  5. BARACLUDE [Concomitant]
  6. CALCIUM SUPPLEMENT [Concomitant]
  7. IBUPROFEN (ADVIL) [Concomitant]
     Dosage: WHEN NECESSARY
  8. DIOVAN [Concomitant]
  9. DESOXIMETASONE [Concomitant]
     Dosage: WHEN NECESSARY
  10. ALIGN PROBIOTIC [Concomitant]

REACTIONS (1)
  - BLOOD BILIRUBIN INCREASED [None]
